FAERS Safety Report 9312159 (Version 2)
Quarter: 2013Q2

REPORT INFORMATION
  Report Type: Spontaneous
  Country: None (occurrence: ES)
  Receive Date: 20130528
  Receipt Date: 20130528
  Transmission Date: 20140414
  Serious: Yes (Death)
  Sender: FDA-Public Use
  Company Number: ES-BAXTER-2011BH006874

PATIENT
  Sex: Male

DRUGS (2)
  1. PHYSIONEAL 35 GLUCOSA 2,27% P/V/22,7 MG/ML. CLEAR-FLEX SOLUCI?N PARA D [Suspect]
     Indication: PERITONEAL DIALYSIS
     Route: 033
     Dates: start: 20100910, end: 20110219
  2. PHYSIONEAL 35 GLUCOSA 2,27% P/V/22,7 MG/ML. CLEAR-FLEX SOLUCI?N PARA D [Suspect]
     Indication: RENAL FAILURE CHRONIC

REACTIONS (1)
  - Cardiovascular disorder [Fatal]
